FAERS Safety Report 9263238 (Version 2)
Quarter: 2013Q2

REPORT INFORMATION
  Report Type: Spontaneous
  Country: None (occurrence: None)
  Receive Date: 20130426
  Receipt Date: 20130603
  Transmission Date: 20140414
  Serious: Yes (Death, Life-Threatening, Hospitalization, Other)
  Sender: FDA-Public Use
  Company Number: 2013-1774

PATIENT
  Age: 63 Year
  Sex: Female

DRUGS (8)
  1. DYSPORT (BOTULINUM TOXIN TYPE A) (BOTULINUM TOXIN TYPE A) [Suspect]
     Indication: MUSCLE SPASTICITY
     Dosage: CYCLE
     Route: 030
     Dates: start: 20120212, end: 20120212
  2. LYRICA (PREGABALIN) [Concomitant]
  3. OMEPRAZOLE (OMEPRAZOLE) [Concomitant]
  4. SINTROM (ACENOCOUMAROL) [Concomitant]
  5. LOVASTATIN (LOVASTATIN) [Concomitant]
  6. CALCIUM (CALCIUM) [Concomitant]
  7. RILAST (BUDESONIDE) [Concomitant]
  8. PONTALSIC (PARACETAMOL W/TRAMADOL) [Concomitant]

REACTIONS (9)
  - Cardiac arrest [None]
  - Respiratory failure [None]
  - Hemiparesis [None]
  - Superinfection [None]
  - Pseudomembranous colitis [None]
  - Weight decreased [None]
  - Dysphagia [None]
  - Dysphonia [None]
  - Overdose [None]
